FAERS Safety Report 25850346 (Version 1)
Quarter: 2025Q3

REPORT INFORMATION
  Report Type: Spontaneous
  Country: EU (occurrence: EU)
  Receive Date: 20250926
  Receipt Date: 20250926
  Transmission Date: 20251021
  Serious: Yes (Other)
  Sender: BAUSCH AND LOMB
  Company Number: EU-BAUSCHBL-2025BNL028719

PATIENT
  Age: 60 Year
  Sex: Female
  Weight: 55 kg

DRUGS (5)
  1. DEXAMETHASONE SODIUM PHOSPHATE [Suspect]
     Active Substance: DEXAMETHASONE SODIUM PHOSPHATE
     Indication: Plasma cell myeloma
     Dates: start: 20230630
  2. IDECABTAGENE VICLEUCEL [Suspect]
     Active Substance: IDECABTAGENE VICLEUCEL
     Indication: Plasma cell myeloma
     Route: 042
     Dates: start: 20230912
  3. POMALIDOMIDE [Suspect]
     Active Substance: POMALIDOMIDE
     Indication: Plasma cell myeloma
     Dates: start: 20230630
  4. ELOTUZUMAB [Suspect]
     Active Substance: ELOTUZUMAB
     Indication: Plasma cell myeloma
     Dates: start: 20230630
  5. CYCLOPHOSPHAMIDE [Suspect]
     Active Substance: CYCLOPHOSPHAMIDE
     Indication: Plasma cell myeloma
     Dates: start: 20230630

REACTIONS (1)
  - Plasma cell myeloma recurrent [Unknown]

NARRATIVE: CASE EVENT DATE: 20240301
